FAERS Safety Report 8926285 (Version 1)
Quarter: 2012Q4

REPORT INFORMATION
  Report Type: Report from Study
  Country: CH (occurrence: CH)
  Receive Date: 20121126
  Receipt Date: 20121126
  Transmission Date: 20130627
  Serious: Yes (Death)
  Sender: FDA-Public Use
  Company Number: CH-CELGENEUS-151-21880-12112324

PATIENT

DRUGS (1)
  1. REVLIMID\PLACEBO [Suspect]
     Indication: ADVANCED CANCER
     Route: 048

REACTIONS (1)
  - Death [Fatal]
